FAERS Safety Report 4601808-X (Version None)
Quarter: 2005Q1

REPORT INFORMATION
  Report Type: 
  Country: None (occurrence: None)
  Receive Date: 20050128
  Receipt Date: 20041119
  Transmission Date: 20050727
  Serious: Yes (Other)
  Sender: FDA-Public Use
  Company Number: 140759USA

PATIENT
  Age: 46 Year
  Sex: Female

DRUGS (4)
  1. COPAXONE [Suspect]
     Indication: MULTIPLE SCLEROSIS
     Dosage: 20 MILLIGRAM QD SUBCUTANEOUS
     Route: 058
     Dates: start: 20021010
  2. ELAVIL [Concomitant]
  3. NEXIUM [Concomitant]
  4. BOTOX [Concomitant]

REACTIONS (7)
  - CHEST PAIN [None]
  - DIARRHOEA [None]
  - FLUSHING [None]
  - LIVER FUNCTION TEST ABNORMAL [None]
  - PAIN [None]
  - SYNCOPE [None]
  - VOMITING [None]
